FAERS Safety Report 8391173 (Version 6)
Quarter: 2013Q2

REPORT INFORMATION
  Report Type: Report from Study
  Country: CZ (occurrence: CZ)
  Receive Date: 20120206
  Receipt Date: 20130522
  Transmission Date: 20140414
  Serious: Yes (Death, Other)
  Sender: FDA-Public Use
  Company Number: CZ-CELGENEUS-217-21880-12012363

PATIENT
  Age: 78 Year
  Sex: Male
  Weight: 83 kg

DRUGS (25)
  1. REVLIMID [Suspect]
     Indication: PLASMA CELL MYELOMA
     Route: 048
     Dates: start: 20110207, end: 20110319
  2. REVLIMID [Suspect]
     Route: 048
     Dates: start: 20110404, end: 20110711
  3. REVLIMID [Suspect]
     Dosage: D7
     Route: 048
     Dates: start: 20110808, end: 20110808
  4. REVLIMID [Suspect]
     Dosage: D1-7
     Route: 048
     Dates: start: 20110919, end: 20110925
  5. REVLIMID [Suspect]
     Dosage: 5 MILLIGRAM
     Route: 048
     Dates: start: 20111017, end: 20111030
  6. CARFILZOMIB [Suspect]
     Indication: PLASMA CELL MYELOMA
     Dosage: 41 MILLIGRAM
     Route: 065
     Dates: start: 20110207, end: 20110208
  7. CARFILZOMIB [Suspect]
     Route: 065
     Dates: start: 20110214, end: 20110222
  8. CARFILZOMIB [Suspect]
     Route: 065
     Dates: start: 20110307, end: 20110315
  9. CARFILZOMIB [Suspect]
     Route: 065
     Dates: start: 20111228, end: 20111228
  10. CARFILZOMIB [Suspect]
     Route: 065
     Dates: start: 20110404, end: 20110927
  11. CARFILZOMIB [Suspect]
     Route: 065
     Dates: start: 20111003, end: 20111031
  12. CARFILZOMIB [Suspect]
     Route: 065
     Dates: start: 20111101, end: 20111101
  13. CARFILZOMIB [Suspect]
     Route: 065
     Dates: start: 20111212, end: 20111213
  14. DEXAMETHASONE [Suspect]
     Indication: PLASMA CELL MYELOMA
     Route: 065
     Dates: start: 20110207, end: 20120102
  15. SODIUM DIHYDRATE PHOSPHATE [Concomitant]
     Indication: HYPOPHOSPHATAEMIA
     Route: 041
     Dates: start: 20111122, end: 20111228
  16. CALTRATE [Concomitant]
     Indication: PLASMA CELL MYELOMA
     Dosage: 4 TABLET
     Route: 048
     Dates: start: 20110418
  17. ERYTHROPOIETIN [Concomitant]
     Indication: ANAEMIA
     Route: 058
     Dates: start: 20110712, end: 20111228
  18. EUPHYLIN [Concomitant]
     Indication: CHRONIC OBSTRUCTIVE PULMONARY DISEASE
     Dosage: 400 MILLIGRAM
     Route: 048
     Dates: start: 20110321
  19. FURON [Concomitant]
     Indication: EYELID OEDEMA
     Dosage: 20 MILLIGRAM
     Route: 048
     Dates: start: 20111114
  20. FILGRASTIM [Concomitant]
     Indication: NEUTROPENIA
     Route: 058
     Dates: start: 20110906
  21. HERPESIN [Concomitant]
     Indication: ANTIVIRAL PROPHYLAXIS
     Dosage: 400 MILLIGRAM
     Route: 048
     Dates: start: 20110206
  22. LANSOPROL [Concomitant]
     Indication: PROPHYLAXIS AGAINST GASTROINTESTINAL ULCER
     Dosage: 15 MILLIGRAM
     Route: 048
     Dates: start: 20110206
  23. ZOFRAN [Concomitant]
     Indication: PROPHYLAXIS OF NAUSEA AND VOMITING
     Route: 041
     Dates: start: 20110404
  24. ZOMETA [Concomitant]
     Indication: BONE DISORDER
     Route: 041
     Dates: start: 20080609
  25. ZYRTEC [Concomitant]
     Indication: EYELID OEDEMA
     Dosage: 10 MILLIGRAM
     Route: 048
     Dates: start: 20110919

REACTIONS (1)
  - Acute myeloid leukaemia [Fatal]
